FAERS Safety Report 11072125 (Version 3)
Quarter: 2015Q3

REPORT INFORMATION
  Report Type: Report from Study
  Country: US (occurrence: US)
  Receive Date: 20150428
  Receipt Date: 20150702
  Transmission Date: 20151125
  Serious: Yes (Death)
  Sender: FDA-Public Use
  Company Number: US-009507513-1504USA021793

PATIENT
  Age: 48 Year
  Sex: Male
  Weight: 81.5 kg

DRUGS (3)
  1. VORINOSTAT [Suspect]
     Active Substance: VORINOSTAT
     Indication: ACUTE MYELOID LEUKAEMIA
     Dosage: 500MG (3X/DAY) PO ON DAYS 1-3 (DAILY DOSE=1500MG)
     Route: 048
     Dates: start: 20150403, end: 20150406
  2. CYTARABINE. [Suspect]
     Active Substance: CYTARABINE
     Indication: ACUTE MYELOID LEUKAEMIA
     Dosage: 1500MG/M2/DAY CONTINUOUS IV INFUSION ON DAYS 4-7
     Route: 042
     Dates: start: 20150406, end: 20150410
  3. IDARUBICIN [Suspect]
     Active Substance: IDARUBICIN
     Indication: ACUTE MYELOID LEUKAEMIA
     Dosage: 12MG/M2/DAY IV OVER 15 MIN ON DAYS 4-6
     Route: 042
     Dates: start: 20150406, end: 20150409

REACTIONS (1)
  - Respiratory failure [Fatal]

NARRATIVE: CASE EVENT DATE: 20150422
